FAERS Safety Report 6069481-4 (Version None)
Quarter: 2009Q1

REPORT INFORMATION
  Report Type: 
  Country: None (occurrence: None)
  Receive Date: 20090206
  Receipt Date: 20090205
  Transmission Date: 20090719
  Serious: Yes (Hospitalization)
  Sender: FDA-Public Use
  Company Number: IT-WYE-H07637709

PATIENT
  Sex: Female

DRUGS (6)
  1. CORDARONE [Suspect]
     Indication: ATRIAL FIBRILLATION
     Route: 048
     Dates: start: 20080101, end: 20080615
  2. LUVION [Concomitant]
     Route: 048
     Dates: start: 20080101, end: 20080610
  3. LANITOP [Concomitant]
     Route: 048
     Dates: start: 20080101, end: 20080615
  4. TRIATEC [Concomitant]
     Route: 048
     Dates: start: 20080101, end: 20080610
  5. MOMENT 200 [Interacting]
     Indication: MUSCULOSKELETAL PAIN
     Route: 048
     Dates: start: 20080605, end: 20080615
  6. COUMADIN [Interacting]
     Indication: ATRIAL FIBRILLATION
     Dosage: 5 MG PRN
     Route: 048
     Dates: start: 20040101, end: 20080615

REACTIONS (3)
  - ANAEMIA [None]
  - DRUG INTERACTION [None]
  - HYPERTHYROIDISM [None]
